FAERS Safety Report 8442050-4 (Version None)
Quarter: 2012Q2

REPORT INFORMATION
  Report Type: 
  Country: None (occurrence: None)
  Receive Date: 20120615
  Receipt Date: 20120307
  Transmission Date: 20120825
  Serious: No
  Sender: FDA-Public Use
  Company Number: US-NOVEN-12US004223

PATIENT
  Sex: Male

DRUGS (3)
  1. DAYTRANA [Suspect]
     Indication: ATTENTION DEFICIT/HYPERACTIVITY DISORDER
     Dosage: 20MG X3 PATCHES, QD
     Route: 062
     Dates: start: 20100101
  2. DAYTRANA [Suspect]
     Dosage: UNK
     Route: 062
     Dates: start: 20070101, end: 20100101
  3. CLONIDINE [Concomitant]
     Indication: ATTENTION DEFICIT/HYPERACTIVITY DISORDER
     Dosage: 1.5 TABLET AT NIGHT; .5 TABLET Q AM
     Route: 048

REACTIONS (2)
  - DRUG PRESCRIBING ERROR [None]
  - DRUG INEFFECTIVE [None]
